FAERS Safety Report 5772356-9 (Version None)
Quarter: 2008Q2

REPORT INFORMATION
  Report Type: 
  Country: None (occurrence: None)
  Receive Date: 20080613
  Receipt Date: 20080507
  Transmission Date: 20081010
  Serious: No
  Sender: FDA-Public Use
  Company Number: US-BAYER-200822624NA

PATIENT
  Age: 48 Year
  Sex: Male
  Weight: 113 kg

DRUGS (2)
  1. ULTRAVIST 370 [Suspect]
     Indication: COMPUTERISED TOMOGRAM THORAX
     Dosage: TOTAL DAILY DOSE: 120 ML  UNIT DOSE: 500 ML
     Route: 042
     Dates: start: 20080507, end: 20080507
  2. CONTRAST MEDIA [Concomitant]
     Indication: COMPUTERISED TOMOGRAM THORAX
     Route: 048
     Dates: start: 20080507

REACTIONS (2)
  - PRURITUS [None]
  - URTICARIA [None]
